FAERS Safety Report 9004746 (Version 2)
Quarter: 2013Q2

REPORT INFORMATION
  Report Type: Spontaneous
  Country: US (occurrence: None)
  Receive Date: 20120508
  Receipt Date: 20121107
  Transmission Date: 20140414
  Serious: Yes (Other)
  Sender: FDA-Public Use
  Company Number: 2012HGS-003242

PATIENT
  Age: 55 Year
  Sex: Female
  Weight: 70.31 kg

DRUGS (6)
  1. BENLYSTA [Suspect]
     Indication: SYSTEMIC LUPUS ERYTHEMATOSUS
     Dosage: 1 IN 28 D, INTRAVENOUS DRIP
     Dates: start: 20120130
  2. PREDNISONE (PREDNISONE) [Concomitant]
  3. XYZAL [Concomitant]
  4. ZANTAC (RANITIDINE HYDROCHLORIDE) [Concomitant]
  5. PLAQUENIL (HYDROXYCHLOROQUINE PHOSPHATE) [Concomitant]
  6. QUINACRINE (MEPACRINE HYDROCHLORIDE) [Concomitant]

REACTIONS (1)
  - Insomnia [None]
